FAERS Safety Report 7608672-5 (Version None)
Quarter: 2011Q3

REPORT INFORMATION
  Report Type: 
  Country: None (occurrence: None)
  Receive Date: 20110714
  Receipt Date: 20110707
  Transmission Date: 20111222
  Serious: Yes (Other)
  Sender: FDA-Public Use
  Company Number: US-JNJFOC-20110703024

PATIENT
  Sex: Male
  Weight: 69.85 kg

DRUGS (5)
  1. REMERON [Concomitant]
     Indication: DEPRESSION
     Route: 048
  2. AMBIEN CR [Concomitant]
     Indication: SLEEP DISORDER
     Dosage: HOURS OF SLEEP
     Route: 048
  3. FLEXERIL [Concomitant]
     Indication: MUSCLE TIGHTNESS
     Route: 048
  4. TRAZODONE HCL [Concomitant]
     Indication: SLEEP DISORDER
     Dosage: HOURS OF SLEEP
     Route: 048
  5. TOPAMAX [Suspect]
     Indication: MUSCLE SPASMS
     Route: 048

REACTIONS (7)
  - BLOOD CHOLESTEROL INCREASED [None]
  - TYPE 2 DIABETES MELLITUS [None]
  - HYPERTENSION [None]
  - WEIGHT DECREASED [None]
  - STRESS [None]
  - GASTRITIS [None]
  - HEPATIC ENZYME INCREASED [None]
